FAERS Safety Report 19426156 (Version 2)
Quarter: 2021Q3

REPORT INFORMATION
  Report Type: Report from Study
  Country: US (occurrence: US)
  Receive Date: 20210616
  Receipt Date: 20210908
  Transmission Date: 20211014
  Serious: Yes (Other)
  Sender: FDA-Public Use
  Company Number: NVSC2021US134156

PATIENT
  Age: 74 Year
  Sex: Male

DRUGS (1)
  1. ENTRESTO [Suspect]
     Active Substance: SACUBITRIL\VALSARTAN
     Indication: CARDIAC FAILURE CHRONIC
     Dosage: 100 MG, (49/51 MG), BID
     Route: 065
     Dates: start: 20190930

REACTIONS (4)
  - Motor dysfunction [Unknown]
  - Ischaemic stroke [Recovered/Resolved]
  - Aphasia [Unknown]
  - Speech disorder [Unknown]

NARRATIVE: CASE EVENT DATE: 20200921
